FAERS Safety Report 20110503 (Version 4)
Quarter: 2025Q4

REPORT INFORMATION
  Report Type: Spontaneous
  Country: US (occurrence: US)
  Receive Date: 20211124
  Receipt Date: 20251218
  Transmission Date: 20260118
  Serious: No
  Sender: NOVO NORDISK
  Company Number: US-NOVOPROD-819881

PATIENT
  Age: 81 Year
  Sex: Male

DRUGS (3)
  1. NOVOLOG [Suspect]
     Active Substance: INSULIN ASPART
     Indication: Product used for unknown indication
     Dosage: 6 TO 8 UNITS THREE TIMES A DAY
     Route: 058
     Dates: start: 2014
  2. NOVOLOG [Suspect]
     Active Substance: INSULIN ASPART
     Dosage: 6 TO 8 UNITS THREE TIMES A DAY
     Route: 058
     Dates: start: 2014
  3. LEVEMIR [Suspect]
     Active Substance: INSULIN DETEMIR
     Indication: Product used for unknown indication
     Dosage: 34 IU, QD IN THE PM
     Route: 058
     Dates: start: 2010

REACTIONS (3)
  - Weight decreased [Not Recovered/Not Resolved]
  - Blood glucose increased [Recovered/Resolved]
  - Hypoacusis [Unknown]

NARRATIVE: CASE EVENT DATE: 20210501
